FAERS Safety Report 4550716-1 (Version None)
Quarter: 2004Q4

REPORT INFORMATION
  Report Type: 
  Country: None (occurrence: None)
  Receive Date: 20041217
  Receipt Date: 20040915
  Transmission Date: 20050328
  Serious: No
  Sender: FDA-Public Use
  Company Number: 2004-BP-08293BP

PATIENT
  Sex: Female

DRUGS (2)
  1. SPIRIVA [Suspect]
     Indication: CHRONIC OBSTRUCTIVE AIRWAYS DISEASE
     Dosage: 18 MCG (18 MCG), IH
     Route: 055
     Dates: start: 20040827
  2. ADVIL [Concomitant]

REACTIONS (8)
  - ASTHENIA [None]
  - CHEILITIS [None]
  - DIZZINESS [None]
  - DYSPNOEA [None]
  - HOARSENESS [None]
  - PARAESTHESIA ORAL [None]
  - RASH [None]
  - SWELLING FACE [None]
